FAERS Safety Report 17342092 (Version 3)
Quarter: 2020Q1

REPORT INFORMATION
  Report Type: Report from Study
  Country: LT (occurrence: LT)
  Receive Date: 20200129
  Receipt Date: 20200217
  Transmission Date: 20200409
  Serious: Yes (Death, Hospitalization)
  Sender: FDA-Public Use
  Company Number: LT-ASTRAZENECA-2020SE09714

PATIENT
  Age: 60 Year
  Sex: Male
  Weight: 84 kg

DRUGS (4)
  1. METHYLPREDNISOLONE. [Concomitant]
     Active Substance: METHYLPREDNISOLONE
     Dosage: 80.0MG UNKNOWN
     Dates: start: 20191219
  2. AMOXICILLIN, CLAVULANICI [Concomitant]
     Dosage: 1000/200 MG X 3 IV AND SOL
  3. DURVALUMAB. [Suspect]
     Active Substance: DURVALUMAB
     Indication: RADIOTHERAPY
     Route: 042
     Dates: start: 20190920, end: 20191126
  4. DEXAMETHASONE. [Concomitant]
     Active Substance: DEXAMETHASONE
     Dosage: 24.0MG UNKNOWN
     Dates: start: 20191210, end: 20191219

REACTIONS (6)
  - Pneumonitis [Fatal]
  - Dyspnoea [Unknown]
  - Pleural effusion [Unknown]
  - Cough [Unknown]
  - Oesophagitis [Unknown]
  - Nasopharyngitis [Unknown]

NARRATIVE: CASE EVENT DATE: 20191210
